FAERS Safety Report 4708913-8 (Version None)
Quarter: 2005Q3

REPORT INFORMATION
  Report Type: 
  Country: None (occurrence: None)
  Receive Date: 20050705
  Receipt Date: 20050624
  Transmission Date: 20060218
  Serious: Yes (Life-Threatening)
  Sender: FDA-Public Use
  Company Number: 200511978GDS

PATIENT
  Age: 59 Year
  Sex: Female

DRUGS (22)
  1. ASPIRIN [Suspect]
     Dosage: 300 MG, TOTAL DAILY; ORAL
     Route: 048
  2. NADROPARIN [Suspect]
     Dosage: 0.6 MG, TOTAL DAILY, SUBCUTANEOUS
     Route: 058
     Dates: start: 20050203, end: 20050313
  3. ACENOCOUMAROL [Suspect]
     Dosage: 1 MG, TOTAL DAILY; ORAL
     Route: 048
  4. ESCITALOPRAM OXALATE [Suspect]
     Dosage: 20 MG, TOTAL DAILY; ORAL
     Route: 048
  5. SIMVASTATIN [Suspect]
     Dosage: 20 MG, TOTAL DAILY; ORAL
     Route: 048
  6. OMPERAZOLE [Suspect]
     Dosage: 20 MG, TOTAL DAILY; ORAL
     Route: 048
  7. ORLISTAT [Concomitant]
  8. DAFLON [Concomitant]
  9. XANAX [Concomitant]
  10. DETRUAITOL [Concomitant]
  11. CLONAZEPAM [Concomitant]
  12. BENERVA [Concomitant]
  13. BECOZYME [Concomitant]
  14. MADOPAR [Concomitant]
  15. VITAMINE B6 [Concomitant]
  16. ROHYPNOL [Concomitant]
  17. DHEA [Concomitant]
  18. EFFORTIL PLUS/GFR/ [Concomitant]
  19. DUSPATALIN [Concomitant]
  20. TILUR [Concomitant]
  21. KAPANOL [Concomitant]
  22. MORPHINE [Concomitant]

REACTIONS (4)
  - CARDIAC TAMPONADE [None]
  - CARDIOGENIC SHOCK [None]
  - INTESTINAL ISCHAEMIA [None]
  - MULTI-ORGAN FAILURE [None]
